FAERS Safety Report 24741100 (Version 1)
Quarter: 2024Q4

REPORT INFORMATION
  Report Type: Spontaneous
  Country: US (occurrence: US)
  Receive Date: 20241217
  Receipt Date: 20241217
  Transmission Date: 20250114
  Serious: No
  Sender: ABBVIE
  Company Number: US-ABBVIE-6047543

PATIENT

DRUGS (1)
  1. BOTOX [Suspect]
     Active Substance: ONABOTULINUMTOXINA
     Indication: Skin disorder
     Dosage: TIME INTERVAL: AS NECESSARY: MESOBOTOX, FORM STRENGTH: 100 UNITS.
     Route: 065

REACTIONS (1)
  - Off label use [Unknown]
